FAERS Safety Report 20476781 (Version 2)
Quarter: 2022Q1

REPORT INFORMATION
  Report Type: Spontaneous
  Country: US (occurrence: US)
  Receive Date: 20220215
  Receipt Date: 20220310
  Transmission Date: 20220423
  Serious: Yes (Other)
  Sender: FDA-Public Use
  Company Number: US-NALPROPION PHARMACEUTICALS INC.-US-2022CUR020407

PATIENT

DRUGS (1)
  1. CONTRAVE [Suspect]
     Active Substance: BUPROPION HYDROCHLORIDE\NALTREXONE HYDROCHLORIDE
     Indication: Weight control
     Dosage: 1 DF, QD (FIRST PILL IN MORNING)
     Route: 065
     Dates: start: 20220125, end: 20220125

REACTIONS (7)
  - Shock [Recovered/Resolved]
  - Panic attack [Recovered/Resolved]
  - Muscle spasms [Recovered/Resolved]
  - Dyspnoea [Unknown]
  - Chills [Not Recovered/Not Resolved]
  - Insomnia [Unknown]
  - Feeling abnormal [Recovered/Resolved]

NARRATIVE: CASE EVENT DATE: 20220125
